FAERS Safety Report 14468085 (Version 7)
Quarter: 2019Q2

REPORT INFORMATION
  Report Type: Spontaneous
  Country: US (occurrence: US)
  Receive Date: 20180131
  Receipt Date: 20190402
  Transmission Date: 20190711
  Serious: Yes (Hospitalization)
  Sender: FDA-Public Use
  Company Number: US-PFIZER INC-2017277615

PATIENT
  Age: 79 Year
  Sex: Female
  Weight: 79 kg

DRUGS (17)
  1. LYRICA [Suspect]
     Active Substance: PREGABALIN
     Indication: NEURALGIA
     Dosage: 150 MG, 2X/DAY
     Route: 048
  2. DOXYCYCLINE. [Concomitant]
     Active Substance: DOXYCYCLINE
     Dosage: 200 MG, DAILY (100 MG 2 DAILY)
  3. POTASSIUM [Concomitant]
     Active Substance: POTASSIUM
     Dosage: 20 MG, DAILY (10 MG 2 DAILY)
  4. ALL DAY ALLERGY [Concomitant]
     Active Substance: CETIRIZINE HYDROCHLORIDE
     Dosage: 10 MG, 1X/DAY
  5. TRAZODONE [Concomitant]
     Active Substance: TRAZODONE HYDROCHLORIDE
     Dosage: 50 MG, 1X/DAY (ONE NIGHTLY)
  6. THYROXINE [Concomitant]
     Active Substance: LEVOTHYROXINE
     Dosage: 88 UG, 1X/DAY
  7. VITAMIN B12 [Concomitant]
     Active Substance: CYANOCOBALAMIN
     Dosage: 1 DF, DAILY
  8. VITAMIN D3 [Concomitant]
     Active Substance: CHOLECALCIFEROL
     Dosage: 1 DF, DAILY
  9. SPIRONOLACTONE. [Concomitant]
     Active Substance: SPIRONOLACTONE
     Dosage: 1 DF, DAILY
  10. FUROSEMIDE. [Concomitant]
     Active Substance: FUROSEMIDE
     Dosage: 1 DF, DAILY
  11. LYRICA [Suspect]
     Active Substance: PREGABALIN
     Indication: PAIN IN EXTREMITY
     Dosage: 150 MG, 3X/DAY
     Route: 048
     Dates: end: 20190315
  12. PLAQUENIL [Concomitant]
     Active Substance: HYDROXYCHLOROQUINE SULFATE
     Dosage: 200 MG, DAILY
  13. FLUTICASONE. [Concomitant]
     Active Substance: FLUTICASONE
     Dosage: 2 DF, DAILY (TWO SQUEEZE DAILY)
  14. AMBIEN [Concomitant]
     Active Substance: ZOLPIDEM TARTRATE
     Dosage: 10 MG, 1X/DAY (ONE NIGHTLY)
  15. BACLOFEN. [Concomitant]
     Active Substance: BACLOFEN
     Dosage: 10 MG, 1X/DAY
  16. LOVASTATIN. [Concomitant]
     Active Substance: LOVASTATIN
     Dosage: 10 MG, 1X/DAY (ONE NIGHTLY)
  17. OMEPRAZOLE. [Concomitant]
     Active Substance: OMEPRAZOLE
     Dosage: 40 MG, DAILY (20 MG 2 DAILY)

REACTIONS (11)
  - Scratch [Not Recovered/Not Resolved]
  - Decreased appetite [Unknown]
  - Musculoskeletal stiffness [Unknown]
  - Burning sensation [Unknown]
  - Malaise [Unknown]
  - Osteomyelitis [Recovered/Resolved with Sequelae]
  - Pain in extremity [Unknown]
  - Pain [Unknown]
  - Circumstance or information capable of leading to medication error [Unknown]
  - Pruritus [Not Recovered/Not Resolved]
  - Chills [Not Recovered/Not Resolved]

NARRATIVE: CASE EVENT DATE: 20190220
